FAERS Safety Report 4973444-7 (Version None)
Quarter: 2006Q2

REPORT INFORMATION
  Report Type: 
  Country: None (occurrence: None)
  Receive Date: 20060407
  Receipt Date: 20060328
  Transmission Date: 20061013
  Serious: Yes (Death, Hospitalization)
  Sender: FDA-Public Use
  Company Number: 2006043807

PATIENT
  Age: 92 Year
  Sex: Female

DRUGS (9)
  1. ALDACTONE [Suspect]
     Indication: ILL-DEFINED DISORDER
  2. ZESTRIL [Suspect]
     Indication: ILL-DEFINED DISORDER
  3. FLUINDIONE (FLUINDIONE) [Concomitant]
  4. FUROSEMIDE [Concomitant]
  5. BISOPROLOL FUMARATE (BISOPROLOL FURMARATE) [Concomitant]
  6. ZOPICLONE (ZOPICLONE) [Concomitant]
  7. HALOPERIDOL [Concomitant]
  8. ACEBUTOLOL HCL [Concomitant]
  9. DIGOXIN [Concomitant]

REACTIONS (3)
  - DEHYDRATION [None]
  - GENERAL PHYSICAL HEALTH DETERIORATION [None]
  - RENAL FAILURE [None]
